FAERS Safety Report 21516696 (Version 1)
Quarter: 2022Q4

REPORT INFORMATION
  Report Type: Spontaneous
  Country: US (occurrence: US)
  Receive Date: 20221027
  Receipt Date: 20221027
  Transmission Date: 20230112
  Serious: Yes (Death, Hospitalization, Other)
  Sender: FDA-Public Use
  Company Number: US-BRISTOL-MYERS SQUIBB COMPANY-2022-128069

PATIENT
  Age: 81 Year
  Sex: Female

DRUGS (1)
  1. REVLIMID [Suspect]
     Active Substance: LENALIDOMIDE
     Indication: Product used for unknown indication
     Dosage: DOSE : 1 CAPSULE;     FREQ : FOR 21 DAYS AND OFF FOR 7 DAYS
     Route: 048

REACTIONS (1)
  - Death [Fatal]

NARRATIVE: CASE EVENT DATE: 20221023
